FAERS Safety Report 10245052 (Version 2)
Quarter: 2014Q3

REPORT INFORMATION
  Report Type: Spontaneous
  Country: US (occurrence: US)
  Receive Date: 20140618
  Receipt Date: 20140912
  Transmission Date: 20150326
  Serious: No
  Sender: FDA-Public Use
  Company Number: US-GALDERMA-US14001237

PATIENT
  Age: 56 Year
  Sex: Female

DRUGS (6)
  1. AVEENO POSITIVELY RADIANT MOISTURIZER [Concomitant]
     Indication: DRY SKIN PROPHYLAXIS
     Route: 061
  2. MIRVASO [Suspect]
     Active Substance: BRIMONIDINE TARTRATE
     Indication: ROSACEA
     Dosage: 0.33%
     Route: 061
     Dates: start: 20131220, end: 20131230
  3. BABY SHAMPOO [Concomitant]
     Indication: THERAPEUTIC SKIN CARE TOPICAL
     Route: 061
  4. DETROL LA [Concomitant]
     Active Substance: TOLTERODINE TARTRATE
     Route: 048
     Dates: start: 1995
  5. LOSARTIN [Concomitant]
     Active Substance: LOSARTAN
     Route: 048
     Dates: start: 2000
  6. LOVASTATIN. [Concomitant]
     Active Substance: LOVASTATIN
     Route: 048
     Dates: start: 2000

REACTIONS (5)
  - Rash macular [Recovered/Resolved]
  - Erythema [Recovered/Resolved]
  - Skin discolouration [Recovered/Resolved]
  - Drug ineffective for unapproved indication [Not Recovered/Not Resolved]
  - Off label use [Recovered/Resolved]

NARRATIVE: CASE EVENT DATE: 20131220
